FAERS Safety Report 13464043 (Version 1)
Quarter: 2017Q2

REPORT INFORMATION
  Report Type: Spontaneous
  Country: US (occurrence: US)
  Receive Date: 20170420
  Receipt Date: 20170420
  Transmission Date: 20170830
  Serious: Yes (Other)
  Sender: FDA-Public Use
  Company Number: US-ROCHE-703602

PATIENT
  Sex: Female
  Weight: 77.1 kg

DRUGS (1)
  1. ACCUTANE [Suspect]
     Active Substance: ISOTRETINOIN
     Indication: ACNE
     Dosage: DURATION: 12- 18 MONTHS
     Route: 048

REACTIONS (9)
  - Psoriatic arthropathy [Not Recovered/Not Resolved]
  - Multiple allergies [Unknown]
  - Hypertension [Unknown]
  - Arthralgia [Unknown]
  - Dry skin [Unknown]
  - Blood triglycerides increased [Recovering/Resolving]
  - Tendon disorder [Unknown]
  - Eczema [Not Recovered/Not Resolved]
  - Premature menopause [Not Recovered/Not Resolved]

NARRATIVE: CASE EVENT DATE: 2000
